FAERS Safety Report 12059200 (Version 1)
Quarter: 2016Q1

REPORT INFORMATION
  Report Type: Spontaneous
  Country: US (occurrence: None)
  Receive Date: 20160209
  Receipt Date: 20160209
  Transmission Date: 20160526
  Serious: Yes (Other)
  Sender: FDA-Public Use
  Company Number: None

PATIENT
  Age: 39 Year
  Sex: Male
  Weight: 111.13 kg

DRUGS (5)
  1. PREDNISONE 10MG RITE AID [Suspect]
     Active Substance: PREDNISONE
     Indication: BRONCHITIS
     Dosage: 1 4X, 3X, 2X, 1X TAKEN BY MOUTH
     Route: 048
     Dates: start: 20160206, end: 20160207
  2. PRO AIR INHALER [Concomitant]
  3. CLARITHROMYCIN. [Concomitant]
     Active Substance: CLARITHROMYCIN
  4. PREDNISONE 10MG RITE AID [Suspect]
     Active Substance: PREDNISONE
     Indication: SINUSITIS
     Dosage: 1 4X, 3X, 2X, 1X TAKEN BY MOUTH
     Route: 048
     Dates: start: 20160206, end: 20160207
  5. PROMETHAZINE [Concomitant]
     Active Substance: PROMETHAZINE\PROMETHAZINE HYDROCHLORIDE

REACTIONS (2)
  - Disease recurrence [None]
  - Hiccups [None]

NARRATIVE: CASE EVENT DATE: 20160207
